FAERS Safety Report 5588288-5 (Version None)
Quarter: 2008Q1

REPORT INFORMATION
  Report Type: 
  Country: None (occurrence: None)
  Receive Date: 20080108
  Receipt Date: 20071227
  Transmission Date: 20080703
  Serious: Yes (Life-Threatening, Other)
  Sender: FDA-Public Use
  Company Number: 071119-0001290

PATIENT
  Age: 35 Day
  Sex: Male

DRUGS (1)
  1. INDOCIN [Suspect]
     Indication: PATENT DUCTUS ARTERIOSUS
     Dosage: 0.14 MG; QD; IV
     Route: 042
     Dates: start: 20070622, end: 20070626

REACTIONS (3)
  - OEDEMA [None]
  - OLIGURIA [None]
  - PERITONEAL DIALYSIS [None]
